FAERS Safety Report 18376357 (Version 1)
Quarter: 2020Q4

REPORT INFORMATION
  Report Type: Other
  Country: JP (occurrence: JP)
  Receive Date: 20201013
  Receipt Date: 20201013
  Transmission Date: 20210114
  Serious: Yes (Other)
  Sender: FDA-Public Use
  Company Number: JP-ROCHE-1525858

PATIENT

DRUGS (3)
  1. TS-1 [Suspect]
     Active Substance: GIMERACIL\OTERACIL\TEGAFUR
     Indication: COLORECTAL CANCER METASTATIC
     Dosage: 80-120MG/BODY/DAY
     Route: 048
  2. OXALIPLATIN. [Suspect]
     Active Substance: OXALIPLATIN
     Indication: COLORECTAL CANCER METASTATIC
     Route: 042
  3. BEVACIZUMAB. [Suspect]
     Active Substance: BEVACIZUMAB
     Indication: COLORECTAL CANCER METASTATIC
     Route: 042

REACTIONS (14)
  - Thrombosis [Unknown]
  - Neutropenia [Unknown]
  - Decreased appetite [Unknown]
  - Peripheral sensory neuropathy [Unknown]
  - Stomatitis [Unknown]
  - Fatigue [Unknown]
  - Gastrointestinal obstruction [Unknown]
  - Thrombocytopenia [Unknown]
  - Leukopenia [Unknown]
  - Nausea [Unknown]
  - Mucosal inflammation [Unknown]
  - Hypertension [Unknown]
  - Pyrexia [Unknown]
  - Haemorrhage [Unknown]
